FAERS Safety Report 24148552 (Version 3)
Quarter: 2024Q3

REPORT INFORMATION
  Report Type: Report from Study
  Country: US (occurrence: US)
  Receive Date: 20240729
  Receipt Date: 20240926
  Transmission Date: 20241017
  Serious: Yes (Other)
  Sender: NOVARTIS
  Company Number: US-002147023-NVSC2024US041081

PATIENT
  Age: 62 Year
  Sex: Male

DRUGS (1)
  1. KESIMPTA [Suspect]
     Active Substance: OFATUMUMAB
     Indication: Multiple sclerosis
     Dosage: 20 MG, QMO
     Route: 058
     Dates: start: 20231201

REACTIONS (6)
  - Multiple sclerosis [Unknown]
  - Gait disturbance [Unknown]
  - Movement disorder [Unknown]
  - Balance disorder [Not Recovered/Not Resolved]
  - Hypoaesthesia [Unknown]
  - Drug ineffective [Unknown]

NARRATIVE: CASE EVENT DATE: 20231201
